FAERS Safety Report 6361620-0 (Version None)
Quarter: 2009Q3

REPORT INFORMATION
  Report Type: 
  Country: None (occurrence: None)
  Receive Date: 20090918
  Receipt Date: 20090914
  Transmission Date: 20100115
  Serious: Yes (Death)
  Sender: FDA-Public Use
  Company Number: PHHY2009JP39517

PATIENT
  Age: 63 Year
  Sex: Male

DRUGS (2)
  1. CYCLOSPORINE [Suspect]
     Indication: INTERSTITIAL LUNG DISEASE
     Dosage: 100 MG
  2. PREDNISOLONE [Concomitant]
     Dosage: 100 MG, UNK

REACTIONS (1)
  - DEATH [None]
